FAERS Safety Report 24066092 (Version 1)
Quarter: 2024Q3

REPORT INFORMATION
  Report Type: Spontaneous
  Country: AU (occurrence: AU)
  Receive Date: 20240709
  Receipt Date: 20240709
  Transmission Date: 20241016
  Serious: Yes (Hospitalization)
  Sender: ROCHE
  Company Number: AU-002147023-NVSC2024AU129105

PATIENT
  Age: 66 Year
  Sex: Female

DRUGS (1)
  1. XOLAIR [Suspect]
     Active Substance: OMALIZUMAB
     Indication: Asthma
     Dosage: 150 MG, Q2W (FOR AT LEAST A DECADE)
     Route: 065

REACTIONS (3)
  - Chest injury [Unknown]
  - Rib fracture [Unknown]
  - Haemothorax [Unknown]

NARRATIVE: CASE EVENT DATE: 20240610
